FAERS Safety Report 8452156-1 (Version None)
Quarter: 2012Q2

REPORT INFORMATION
  Report Type: 
  Country: None (occurrence: None)
  Receive Date: 20120620
  Receipt Date: 20120402
  Transmission Date: 20120825
  Serious: No
  Sender: FDA-Public Use
  Company Number: US-VERTEX PHARMACEUTICALS INC.-AE-2012-004684

PATIENT
  Sex: Male

DRUGS (6)
  1. COZAAR [Concomitant]
  2. HYDROMORPHONE HCL [Concomitant]
  3. INCIVEK [Suspect]
     Indication: HEPATITIS C
     Route: 048
     Dates: start: 20120319
  4. PEGASYS [Concomitant]
     Indication: HEPATITIS C
     Dates: start: 20120319
  5. RIBAVIRIN [Concomitant]
     Indication: HEPATITIS C
     Dates: start: 20120319
  6. DIAZEPAM [Concomitant]

REACTIONS (1)
  - VOMITING [None]
